FAERS Safety Report 12459073 (Version 3)
Quarter: 2024Q4

REPORT INFORMATION
  Report Type: Report from Study
  Country: IT (occurrence: IT)
  Receive Date: 20160613
  Receipt Date: 20241102
  Transmission Date: 20250115
  Serious: Yes (Life-Threatening, Hospitalization, Other)
  Sender: AUROBINDO
  Company Number: IT-AUROBINDO-AUR-APL-2016-07581

PATIENT
  Age: 65 Year
  Sex: Female
  Weight: 65 kg

DRUGS (15)
  1. PAROXETINE [Interacting]
     Active Substance: PAROXETINE
     Indication: Antidepressant therapy
     Dosage: 20 MG, DAILY
     Route: 065
  2. FENTANYL [Interacting]
     Active Substance: FENTANYL
     Indication: Anaesthesia
     Dosage: 250 ?G, UNK
     Route: 065
  3. FENTANYL [Interacting]
     Active Substance: FENTANYL
     Dosage: 700 ?G, UNK
     Route: 065
  4. METHYLENE BLUE [Interacting]
     Active Substance: METHYLENE BLUE
     Indication: Vasoplegia syndrome
     Dosage: 100 MG, UNK
     Route: 065
  5. PROPOFOL [Concomitant]
     Active Substance: PROPOFOL
     Indication: Anaesthesia
     Dosage: 50 MILLIGRAM
     Route: 065
  6. PROPOFOL [Concomitant]
     Active Substance: PROPOFOL
     Dosage: 1354 MILLIGRAM
     Route: 065
  7. ROCURONIUM [Concomitant]
     Active Substance: ROCURONIUM BROMIDE
     Indication: Anaesthesia
     Dosage: 50 MILLIGRAM
     Route: 065
  8. ROCURONIUM [Concomitant]
     Active Substance: ROCURONIUM BROMIDE
     Dosage: 80 MILLIGRAM
     Route: 065
  9. SEVOFLURANE [Concomitant]
     Active Substance: SEVOFLURANE
     Indication: Anaesthesia
     Dosage: 0.5-1 MAC/HR
     Route: 065
  10. NOREPINEPHRINE [Concomitant]
     Active Substance: NOREPINEPHRINE\NOREPINEPHRINE BITARTRATE
     Indication: Vasoplegia syndrome
     Dosage: 0.1 ?G/KG/MIN
     Route: 065
  11. LANSOPRAZOLE [Concomitant]
     Active Substance: LANSOPRAZOLE
     Indication: Product used for unknown indication
     Dosage: UNK
     Route: 065
  12. VALSARTAN [Concomitant]
     Active Substance: VALSARTAN
     Indication: Product used for unknown indication
     Dosage: UNK
     Route: 065
  13. LORMETAZEPAM [Concomitant]
     Active Substance: LORMETAZEPAM
     Indication: Product used for unknown indication
     Dosage: UNK
     Route: 065
  14. FUROSEMIDE [Concomitant]
     Active Substance: FUROSEMIDE
     Indication: Product used for unknown indication
     Dosage: UNK
     Route: 065
  15. MIDAZOLAM [Concomitant]
     Active Substance: MIDAZOLAM
     Indication: Anaesthesia
     Dosage: 5 MILLIGRAM
     Route: 065

REACTIONS (8)
  - Serotonin syndrome [Recovered/Resolved]
  - Generalised tonic-clonic seizure [Recovered/Resolved]
  - Coma [Recovered/Resolved]
  - Toxicity to various agents [Recovered/Resolved]
  - Nystagmus [Recovered/Resolved]
  - Muscle rigidity [Recovered/Resolved]
  - Hyperthermia [Recovered/Resolved]
  - Drug interaction [Recovered/Resolved]
